FAERS Safety Report 25921149 (Version 1)
Quarter: 2025Q4

REPORT INFORMATION
  Report Type: Spontaneous
  Country: EU (occurrence: EU)
  Receive Date: 20251014
  Receipt Date: 20251014
  Transmission Date: 20260119
  Serious: Yes (Life-Threatening, Hospitalization)
  Sender: Hugel Aesthetics
  Company Number: EU-Hugel Aesthetics-2186595

PATIENT
  Age: 31 Year
  Sex: Female

DRUGS (2)
  1. BOTULINUM TOXIN TYPE A [Suspect]
     Active Substance: BOTULINUM TOXIN TYPE A
     Indication: Skin wrinkling
     Dates: start: 20250902, end: 20250902
  2. Drug Name: Sodium Hyaluronate?Generic Name: Hyaluronic Acid [Concomitant]

REACTIONS (14)
  - Botulism [Not Recovered/Not Resolved]
  - Off label use [Recovered/Resolved]
  - Dysphonia [Unknown]
  - Dysarthria [Unknown]
  - Dyspnoea [Unknown]
  - Hypercapnia [Unknown]
  - Dysphagia [Unknown]
  - Dysphonia [Unknown]
  - Dysarthria [Unknown]
  - Facial paralysis [Unknown]
  - Eyelid ptosis [Unknown]
  - Dysphagia [Unknown]
  - Eyelid oedema [Unknown]
  - Condition aggravated [Unknown]

NARRATIVE: CASE EVENT DATE: 20250902
